FAERS Safety Report 9425059 (Version 3)
Quarter: 2015Q2

REPORT INFORMATION
  Report Type: Spontaneous
  Country: PL (occurrence: PL)
  Receive Date: 20130729
  Receipt Date: 20150603
  Transmission Date: 20150821
  Serious: Yes (Life-Threatening, Other)
  Sender: FDA-Public Use
  Company Number: PL-PFIZER INC-2013220780

PATIENT
  Age: 63 Year
  Sex: Male
  Weight: 80 kg

DRUGS (2)
  1. CISPLATIN. [Suspect]
     Active Substance: CISPLATIN
     Indication: LUNG NEOPLASM MALIGNANT
     Dosage: 58.07 MG, 1 IN 1D
     Route: 042
     Dates: start: 20130626, end: 20130628
  2. NAVELBINE ^ASTA MEDICA^ [Concomitant]
     Indication: LUNG NEOPLASM MALIGNANT
     Dosage: 58.07 MG, 1 IN 1D
     Dates: start: 20130626, end: 20130703

REACTIONS (3)
  - Leukopenia [Recovering/Resolving]
  - Neutropenia [Recovering/Resolving]
  - Pyrexia [Recovering/Resolving]

NARRATIVE: CASE EVENT DATE: 20130708
